FAERS Safety Report 10129861 (Version 1)
Quarter: 2014Q2

REPORT INFORMATION
  Report Type: Spontaneous
  Country: CA (occurrence: None)
  Receive Date: 20140424
  Receipt Date: 20140424
  Transmission Date: 20141212
  Serious: Yes (Death)
  Sender: FDA-Public Use
  Company Number: CA-015388

PATIENT
  Age: 76 Year
  Sex: Male

DRUGS (10)
  1. FIRMAGON [Suspect]
     Indication: PROSTATE CANCER
     Route: 058
     Dates: start: 20121204, end: 20140326
  2. PREDNISONE [Concomitant]
  3. HYDROMORPHONE [Concomitant]
  4. VITAMIN D NOS [Concomitant]
  5. CALCIUM [Concomitant]
  6. ADVAIR [Concomitant]
  7. SALBUTAMOL [Concomitant]
  8. ALFUZOSIN [Concomitant]
  9. XGEVA [Concomitant]
  10. ALLOPURINOL [Concomitant]

REACTIONS (1)
  - Death [None]
